FAERS Safety Report 18013013 (Version 1)
Quarter: 2020Q3

REPORT INFORMATION
  Report Type: Spontaneous
  Country: US (occurrence: US)
  Receive Date: 20200710
  Receipt Date: 20200710
  Transmission Date: 20201103
  Serious: Yes (Disabling)
  Sender: FDA-Public Use
  Company Number: None

PATIENT
  Age: 72 Year
  Sex: Female

DRUGS (3)
  1. PALIPERIDONE EXTENDED?RELEASE [Suspect]
     Active Substance: PALIPERIDONE
  2. RISPERIDONE. [Suspect]
     Active Substance: RISPERIDONE
     Indication: SCHIZOPHRENIA
     Route: 048
  3. RISPERIDONE. [Suspect]
     Active Substance: RISPERIDONE
     Indication: BIPOLAR DISORDER
     Route: 048

REACTIONS (4)
  - Wheelchair user [None]
  - Neuromyopathy [None]
  - Affective disorder [None]
  - Musculoskeletal disorder [None]

NARRATIVE: CASE EVENT DATE: 20190515
